FAERS Safety Report 10223073 (Version 1)
Quarter: 2014Q2

REPORT INFORMATION
  Report Type: Spontaneous
  Country: US (occurrence: None)
  Receive Date: 20140605
  Receipt Date: 20140605
  Transmission Date: 20141212
  Serious: Yes (Other)
  Sender: FDA-Public Use
  Company Number: UNT-2014-000201

PATIENT
  Sex: Female

DRUGS (1)
  1. REMODULIN (TREPROSTINIL SODIUM) INJECTION, 5MG/ML [Suspect]
     Indication: PULMONARY ARTERIAL HYPERTENSION
     Dates: start: 20140213

REACTIONS (3)
  - Infusion site infection [None]
  - Infusion site irritation [None]
  - Pyrexia [None]
